FAERS Safety Report 8161553-3 (Version None)
Quarter: 2012Q1

REPORT INFORMATION
  Report Type: 
  Country: None (occurrence: None)
  Receive Date: 20120222
  Receipt Date: 20120222
  Transmission Date: 20120608
  Serious: Yes (Disabling)
  Sender: FDA-Public Use
  Company Number: None

PATIENT
  Age: 68 Year
  Sex: Female
  Weight: 61.2356 kg

DRUGS (1)
  1. LOVASTATIN [Suspect]
     Indication: ARTERIOSCLEROSIS
     Dosage: 1 EVERY DAY MOUTH
     Route: 048
     Dates: start: 20110912, end: 20111112

REACTIONS (3)
  - HYPOAESTHESIA ORAL [None]
  - AGEUSIA [None]
  - DRY MOUTH [None]
